FAERS Safety Report 20768933 (Version 1)
Quarter: 2022Q2

REPORT INFORMATION
  Report Type: Spontaneous
  Country: HK (occurrence: HK)
  Receive Date: 20220429
  Receipt Date: 20220429
  Transmission Date: 20220721
  Serious: Yes (Hospitalization, Other)
  Sender: FDA-Public Use
  Company Number: HK-SUN PHARMACEUTICAL INDUSTRIES LTD-2022RR-334928

PATIENT
  Age: 65 Year
  Sex: Male

DRUGS (4)
  1. CEFTRIAXONE [Suspect]
     Active Substance: CEFTRIAXONE
     Indication: Necrotising fasciitis
     Dosage: UNK
     Route: 065
  2. AMPICILLIN [Suspect]
     Active Substance: AMPICILLIN
     Indication: Peripheral swelling
     Dosage: UNK
     Route: 042
  3. CLINDAMYCIN [Suspect]
     Active Substance: CLINDAMYCIN
     Indication: Necrotising fasciitis
     Dosage: UNK
     Route: 065
  4. CLOXACILLIN [Suspect]
     Active Substance: CLOXACILLIN
     Indication: Peripheral swelling
     Dosage: UNK
     Route: 042

REACTIONS (2)
  - Condition aggravated [Unknown]
  - Drug ineffective [Unknown]
